FAERS Safety Report 16316829 (Version 1)
Quarter: 2019Q2

REPORT INFORMATION
  Report Type: Spontaneous
  Country: None (occurrence: US)
  Receive Date: 20190515
  Receipt Date: 20190515
  Transmission Date: 20190711
  Serious: No
  Sender: FDA-Public Use
  Company Number: US-VIFOR (INTERNATIONAL) INC.-VIT-2019-03776

PATIENT
  Age: 51 Year
  Sex: Male

DRUGS (2)
  1. MIRCERA [Suspect]
     Active Substance: METHOXY POLYETHYLENE GLYCOL-EPOETIN BETA
  2. MIRCERA [Suspect]
     Active Substance: METHOXY POLYETHYLENE GLYCOL-EPOETIN BETA
     Indication: PRODUCT USED FOR UNKNOWN INDICATION
     Dosage: LATEST MIRCERA DOSE
     Dates: start: 20180316

REACTIONS (2)
  - Drug hypersensitivity [Recovered/Resolved]
  - Dyspnoea [Recovered/Resolved]

NARRATIVE: CASE EVENT DATE: 2018
